FAERS Safety Report 4990974-2 (Version None)
Quarter: 2006Q2

REPORT INFORMATION
  Report Type: 
  Country: None (occurrence: None)
  Receive Date: 20060503
  Receipt Date: 20050804
  Transmission Date: 20061013
  Serious: Yes (Hospitalization)
  Sender: FDA-Public Use
  Company Number: US-MERCK-0508USA01329

PATIENT
  Age: 53 Year
  Sex: Male
  Weight: 91 kg

DRUGS (2)
  1. VIOXX [Suspect]
     Indication: ARTHRITIS
     Route: 048
     Dates: start: 20010215, end: 20040126
  2. VIOXX [Suspect]
     Route: 048
     Dates: start: 20010215, end: 20040126

REACTIONS (5)
  - ARTERIAL OCCLUSIVE DISEASE [None]
  - ARTERIAL THROMBOSIS [None]
  - CHEST PAIN [None]
  - JOINT INJURY [None]
  - NEPHROLITHIASIS [None]
